FAERS Safety Report 21255017 (Version 1)
Quarter: 2022Q3

REPORT INFORMATION
  Report Type: Spontaneous
  Country: US (occurrence: US)
  Receive Date: 20220825
  Receipt Date: 20220825
  Transmission Date: 20221027
  Serious: No
  Sender: FDA-Public Use
  Company Number: US-AMGEN-USASP2022143742

PATIENT
  Sex: Male

DRUGS (5)
  1. KYPROLIS [Suspect]
     Active Substance: CARFILZOMIB
     Indication: Product used for unknown indication
     Dosage: 100 MILLIGRAM, 60 MG VIAL, 1ST, 8TH, 15TH DAYS OF A 28 DAYS CYCLE
     Route: 042
  2. KYPROLIS [Suspect]
     Active Substance: CARFILZOMIB
     Dosage: 30 MG VIAL, 1ST, 8TH, 15TH DAYS OF A 28 DAYS CYCLE
     Route: 042
  3. KYPROLIS [Suspect]
     Active Substance: CARFILZOMIB
     Dosage: 10 MG VIAL, 1ST, 8TH, 15TH DAYS OF A 28 DAYS CYCLE
     Route: 042
  4. DEXAMETHASONE [Concomitant]
     Active Substance: DEXAMETHASONE
     Dosage: UNK
     Route: 065
  5. ACETAMINOPHEN [Concomitant]
     Active Substance: ACETAMINOPHEN
     Indication: Vascular pain
     Dosage: UNK
     Route: 065

REACTIONS (1)
  - Infusion site pain [Not Recovered/Not Resolved]
